FAERS Safety Report 24274103 (Version 1)
Quarter: 2024Q3

REPORT INFORMATION
  Report Type: Spontaneous
  Country: CN (occurrence: CN)
  Receive Date: 20240902
  Receipt Date: 20240902
  Transmission Date: 20241017
  Serious: Yes (Other)
  Sender: JIANGSU HANSOH PHARMACEUTICAL
  Company Number: CN-Jiangsu Hansoh Pharmaceutical Co., Ltd-2161086

PATIENT
  Age: 45 Year
  Sex: Female
  Weight: 54.3 kg

DRUGS (3)
  1. GEMCITABINE HYDROCHLORIDE [Suspect]
     Active Substance: GEMCITABINE HYDROCHLORIDE
     Indication: Angiocentric lymphoma
     Route: 041
     Dates: start: 20240807, end: 20240807
  2. ETOPOSIDE [Suspect]
     Active Substance: ETOPOSIDE
     Route: 041
     Dates: start: 20240807, end: 20240809
  3. PEGASPARGASE [Suspect]
     Active Substance: PEGASPARGASE
     Route: 030
     Dates: start: 20240807, end: 20240807

REACTIONS (2)
  - Pancreatitis acute [Recovering/Resolving]
  - Off label use [Unknown]

NARRATIVE: CASE EVENT DATE: 20240807
